FAERS Safety Report 20517912 (Version 4)
Quarter: 2022Q2

REPORT INFORMATION
  Report Type: Other
  Country: US (occurrence: None)
  Receive Date: 20220225
  Receipt Date: 20220620
  Transmission Date: 20220721
  Serious: Yes (Other)
  Sender: FDA-Public Use
  Company Number: US-ROCHE-2831344

PATIENT
  Age: 68 Year
  Sex: Male

DRUGS (16)
  1. ESBRIET [Suspect]
     Active Substance: PIRFENIDONE
     Indication: Pulmonary fibrosis
     Dosage: TAKE 1 TABLET THREE TIMES A DAY WITH MEALS (DAY 1 THROUGH 7: 1 TABLET BY MOUTH THREE TIMES A DAY WIT
     Route: 048
  2. ESBRIET [Suspect]
     Active Substance: PIRFENIDONE
     Indication: Idiopathic pulmonary fibrosis
  3. OXYGEN [Concomitant]
     Active Substance: OXYGEN
     Dates: start: 202102
  4. ALBUTEROL SULFATE [Concomitant]
     Active Substance: ALBUTEROL SULFATE
  5. ASPIRIN [Concomitant]
     Active Substance: ASPIRIN
  6. AZELASTINE [Concomitant]
     Active Substance: AZELASTINE
  7. BENAZEPRIL [Concomitant]
     Active Substance: BENAZEPRIL HYDROCHLORIDE
  8. CLOPIDOGREL [Concomitant]
     Active Substance: CLOPIDOGREL BISULFATE
  9. DOXYCYCLINE [Concomitant]
     Active Substance: DOXYCYCLINE
  10. EMPAGLIFLOZIN [Concomitant]
     Active Substance: EMPAGLIFLOZIN
  11. ESOMEPRAZOLE [Concomitant]
     Active Substance: ESOMEPRAZOLE
  12. GEMFIBROZIL [Concomitant]
     Active Substance: GEMFIBROZIL
  13. METFORMIN [Concomitant]
     Active Substance: METFORMIN HYDROCHLORIDE
  14. METOPROLOL [Concomitant]
     Active Substance: METOPROLOL
  15. ROSUVASTATIN [Concomitant]
     Active Substance: ROSUVASTATIN
  16. TADALAFIL [Concomitant]
     Active Substance: TADALAFIL

REACTIONS (11)
  - Sleep apnoea syndrome [Unknown]
  - Paranasal sinus hyposecretion [Unknown]
  - Sinus congestion [Unknown]
  - Diarrhoea [Unknown]
  - Dizziness [Unknown]
  - Diabetes mellitus [Unknown]
  - Cardiac disorder [Unknown]
  - Respiratory rate decreased [Unknown]
  - Abdominal discomfort [Unknown]
  - Hypoacusis [Unknown]
  - Nausea [Unknown]

NARRATIVE: CASE EVENT DATE: 20201201
